FAERS Safety Report 4494076-3 (Version None)
Quarter: 2004Q4

REPORT INFORMATION
  Report Type: 
  Country: None (occurrence: None)
  Receive Date: 20041105
  Receipt Date: 20041005
  Transmission Date: 20050328
  Serious: Yes (Other)
  Sender: FDA-Public Use
  Company Number: NZ-MERCK-0410NZL00036

PATIENT
  Age: 78 Year
  Sex: Female

DRUGS (7)
  1. VIOXX [Suspect]
     Indication: POST PROCEDURAL PAIN
     Route: 048
     Dates: start: 20020101, end: 20041004
  2. LOSEC (OMEPRAZOLE) [Concomitant]
     Indication: GASTRIC DISORDER
     Route: 048
     Dates: start: 20020101
  3. CARTIA (ASPIRIN) [Concomitant]
     Route: 048
  4. LIPEX [Concomitant]
     Indication: BLOOD CHOLESTEROL INCREASED
     Route: 048
     Dates: start: 20030101
  5. CALCIUM (UNSPECIFIED) [Concomitant]
     Route: 048
     Dates: start: 20030101
  6. AMAZIDE [Concomitant]
     Indication: OEDEMA
     Route: 048
     Dates: start: 20000101
  7. FLECAINIDE ACETATE [Concomitant]
     Indication: CARDIAC DISORDER
     Route: 048
     Dates: start: 20000101

REACTIONS (4)
  - CEREBROVASCULAR ACCIDENT [None]
  - CYANOSIS [None]
  - HYPERTENSION [None]
  - PALPITATIONS [None]
